FAERS Safety Report 5860920-8 (Version None)
Quarter: 2008Q3

REPORT INFORMATION
  Report Type: 
  Country: None (occurrence: None)
  Receive Date: 20080827
  Receipt Date: 20071227
  Transmission Date: 20090109
  Serious: No
  Sender: FDA-Public Use
  Company Number: US-ABBOTT-08P-163-0432375-00

PATIENT
  Sex: Male
  Weight: 118.18 kg

DRUGS (6)
  1. COATED PDS [Suspect]
     Indication: BLOOD CHOLESTEROL INCREASED
     Route: 048
     Dates: start: 20060201, end: 20060601
  2. COATED PDS [Suspect]
     Route: 048
     Dates: start: 20071001
  3. WARFARIN SODIUM [Concomitant]
     Indication: ATRIAL FIBRILLATION
     Route: 048
  4. ROSUVASTATIN [Concomitant]
     Indication: BLOOD CHOLESTEROL INCREASED
     Route: 048
  5. ATENOLOL [Concomitant]
     Indication: CARDIAC DISORDER
     Route: 048
  6. ESOMEPRAZOLE MAGNESIUM [Concomitant]
     Indication: GASTROOESOPHAGEAL REFLUX DISEASE
     Route: 048

REACTIONS (2)
  - GENERALISED ERYTHEMA [None]
  - PRURITUS GENERALISED [None]
